FAERS Safety Report 5692293-8 (Version None)
Quarter: 2008Q2

REPORT INFORMATION
  Report Type: 
  Country: None (occurrence: None)
  Receive Date: 20080402
  Receipt Date: 20080328
  Transmission Date: 20081010
  Serious: Yes (Other)
  Sender: FDA-Public Use
  Company Number: DE-JNJFOC-20071202437

PATIENT
  Sex: Male
  Weight: 57.1 kg

DRUGS (1)
  1. RISPERDAL [Suspect]
     Indication: AUTISM SPECTRUM DISORDER
     Route: 048

REACTIONS (1)
  - PAPILLOEDEMA [None]
